FAERS Safety Report 7305405-7 (Version None)
Quarter: 2011Q1

REPORT INFORMATION
  Report Type: 
  Country: None (occurrence: None)
  Receive Date: 20110222
  Receipt Date: 20110217
  Transmission Date: 20110831
  Serious: Yes (Death, Other)
  Sender: FDA-Public Use
  Company Number: PHHY2010BR59891

PATIENT
  Sex: Female

DRUGS (5)
  1. HYGROTON [Suspect]
  2. CARVEDILOL [Suspect]
     Dosage: UNK
  3. EXELON [Suspect]
     Dosage: 9.5 MG/10 CM^2
     Route: 062
  4. LEPONEX [Suspect]
     Dosage: 25 MG
  5. LEPONEX [Suspect]
     Dosage: 100 MG, UNK

REACTIONS (3)
  - SYNCOPE [None]
  - DEATH [None]
  - SHOCK [None]
